FAERS Safety Report 25323320 (Version 1)
Quarter: 2025Q2

REPORT INFORMATION
  Report Type: Spontaneous
  Country: DK (occurrence: DK)
  Receive Date: 20250516
  Receipt Date: 20250516
  Transmission Date: 20250717
  Serious: Yes (Other)
  Sender: TEVA
  Company Number: None

PATIENT
  Age: 6 Decade
  Sex: Female
  Weight: 58 kg

DRUGS (9)
  1. GABAPENTIN [Suspect]
     Active Substance: GABAPENTIN
     Indication: Neuralgia
     Route: 048
     Dates: start: 2018, end: 2024
  2. Lipistad [Concomitant]
     Indication: Cardiovascular event prophylaxis
     Route: 065
     Dates: start: 2018
  3. Furix [Concomitant]
     Indication: Fluid retention
     Route: 065
     Dates: start: 1999
  4. PANTOPRAZOLE SODIUM [Concomitant]
     Active Substance: PANTOPRAZOLE SODIUM
     Indication: Gastric ulcer
     Route: 065
  5. POTASSIUM CHLORIDE [Concomitant]
     Active Substance: POTASSIUM CHLORIDE
     Indication: Joint swelling
     Route: 065
     Dates: start: 1999
  6. TRAMADOL HYDROCHLORIDE [Concomitant]
     Active Substance: TRAMADOL HYDROCHLORIDE
     Indication: Back disorder
     Route: 065
     Dates: start: 1999
  7. ESTRADIOL HEMIHYDRATE [Concomitant]
     Active Substance: ESTRADIOL HEMIHYDRATE
     Indication: Hysterectomy
     Route: 065
  8. Pinex [Concomitant]
     Indication: Back pain
     Route: 065
     Dates: start: 1999
  9. CLOPIDOGREL BESILATE [Concomitant]
     Active Substance: CLOPIDOGREL BESILATE
     Indication: Prophylaxis
     Route: 065
     Dates: start: 2018

REACTIONS (7)
  - Haematochezia [Recovering/Resolving]
  - Memory impairment [Not Recovered/Not Resolved]
  - Disturbance in attention [Unknown]
  - Fall [Recovering/Resolving]
  - Abdominal pain [Recovering/Resolving]
  - Diarrhoea [Recovering/Resolving]
  - Dizziness [Recovering/Resolving]

NARRATIVE: CASE EVENT DATE: 20180101
